FAERS Safety Report 21741566 (Version 1)
Quarter: 2022Q4

REPORT INFORMATION
  Report Type: Spontaneous
  Country: IT (occurrence: IT)
  Receive Date: 20221216
  Receipt Date: 20221216
  Transmission Date: 20230112
  Serious: Yes (Hospitalization)
  Sender: FDA-Public Use
  Company Number: IT-CLOVIS ONCOLOGY-CLO-2022-001361

PATIENT

DRUGS (3)
  1. RUBRACA [Suspect]
     Active Substance: RUCAPARIB CAMSYLATE
     Indication: Ovarian cancer stage III
     Dosage: 1200 MILLIGRAM, QD
     Route: 048
     Dates: start: 20221003, end: 20221206
  2. RUBRACA [Suspect]
     Active Substance: RUCAPARIB CAMSYLATE
     Indication: Ovarian cancer recurrent
  3. RUBRACA [Suspect]
     Active Substance: RUCAPARIB CAMSYLATE
     Indication: Gene mutation identification test negative

REACTIONS (1)
  - Anaemia of malignant disease [Recovered/Resolved]

NARRATIVE: CASE EVENT DATE: 20221204
